FAERS Safety Report 4284785-3 (Version None)
Quarter: 2004Q1

REPORT INFORMATION
  Report Type: 
  Country: None (occurrence: None)
  Receive Date: 20040202
  Receipt Date: 20040122
  Transmission Date: 20041129
  Serious: Yes (Hospitalization)
  Sender: FDA-Public Use
  Company Number: AU-JNJFOC-20040104959

PATIENT

DRUGS (1)
  1. GALANTAMINE (GALANTAMINE) TABLETS [Suspect]
     Indication: DEMENTIA ALZHEIMER'S TYPE
     Dosage: ORAL
     Route: 048

REACTIONS (2)
  - DIARRHOEA [None]
  - HYPONATRAEMIA [None]
